FAERS Safety Report 8421219-9 (Version None)
Quarter: 2012Q2

REPORT INFORMATION
  Report Type: 
  Country: None (occurrence: None)
  Receive Date: 20120608
  Receipt Date: 20120601
  Transmission Date: 20120825
  Serious: Yes (Hospitalization, Other)
  Sender: FDA-Public Use
  Company Number: US-BAYER-2011-072822

PATIENT
  Age: 22 Year
  Sex: Female
  Weight: 82 kg

DRUGS (2)
  1. YASMIN [Suspect]
     Indication: CONTRACEPTION
     Dosage: UNK
     Dates: start: 20060101, end: 20060601
  2. ALBUTEROL [Concomitant]

REACTIONS (7)
  - DEEP VEIN THROMBOSIS [None]
  - PSYCHOLOGICAL TRAUMA [None]
  - ANXIETY [None]
  - PAIN IN EXTREMITY [None]
  - INJURY [None]
  - ANHEDONIA [None]
  - FEAR [None]
